FAERS Safety Report 6073258-3 (Version None)
Quarter: 2009Q1

REPORT INFORMATION
  Report Type: 
  Country: None (occurrence: None)
  Receive Date: 20090205
  Receipt Date: 20090122
  Transmission Date: 20090719
  Serious: Yes (Other)
  Sender: FDA-Public Use
  Company Number: 2009BM000010

PATIENT
  Sex: Male

DRUGS (1)
  1. NAGLAZYME [Suspect]

REACTIONS (1)
  - INTRACRANIAL PRESSURE INCREASED [None]
